FAERS Safety Report 8812258 (Version 2)
Quarter: 2015Q3

REPORT INFORMATION
  Report Type: Report from Study
  Country: US (occurrence: US)
  Receive Date: 20120927
  Receipt Date: 20150709
  Transmission Date: 20151125
  Serious: Yes (Hospitalization)
  Sender: FDA-Public Use
  Company Number: US-ROCHE-1124286

PATIENT
  Age: 53 Year
  Sex: Female
  Weight: 64.92 kg

DRUGS (15)
  1. COUMADIN [Concomitant]
     Active Substance: WARFARIN SODIUM
     Route: 048
  2. LOVENOX [Concomitant]
     Active Substance: ENOXAPARIN SODIUM
     Route: 058
  3. BENADRYL [Concomitant]
     Active Substance: DIPHENHYDRAMINE HYDROCHLORIDE
     Route: 065
  4. XELODA [Suspect]
     Active Substance: CAPECITABINE
     Indication: PANCREATIC CARCINOMA
     Route: 042
     Dates: start: 20050323
  5. GEMCITABINE [Concomitant]
     Active Substance: GEMCITABINE\GEMCITABINE HYDROCHLORIDE
     Route: 042
     Dates: start: 20050323
  6. LEUCOVORIN. [Concomitant]
     Active Substance: LEUCOVORIN
     Route: 065
  7. DECADRON [Concomitant]
     Active Substance: DEXAMETHASONE
     Route: 065
  8. ATIVAN [Concomitant]
     Active Substance: LORAZEPAM
     Route: 065
  9. OXALIPLATIN. [Concomitant]
     Active Substance: OXALIPLATIN
     Route: 065
  10. FLUOROURACIL. [Concomitant]
     Active Substance: FLUOROURACIL
     Route: 065
  11. HEPARIN [Concomitant]
     Active Substance: HEPARIN SODIUM
     Route: 065
  12. NYSTATIN. [Concomitant]
     Active Substance: NYSTATIN
  13. AVASTIN [Suspect]
     Active Substance: BEVACIZUMAB
     Indication: PANCREATIC CARCINOMA
     Route: 042
     Dates: start: 20050412
  14. PROCRIT [Concomitant]
     Active Substance: ERYTHROPOIETIN
     Route: 058
  15. ANZEMET [Concomitant]
     Active Substance: DOLASETRON MESYLATE
     Route: 065

REACTIONS (32)
  - Abdominal pain [Unknown]
  - Constipation [Unknown]
  - Fatigue [Unknown]
  - Dehydration [Unknown]
  - Dysphagia [Unknown]
  - White blood cell count increased [Unknown]
  - Thrombosis [Unknown]
  - Oedema [Unknown]
  - Pyrexia [Unknown]
  - Toxicity to various agents [Unknown]
  - Sleep disorder [Unknown]
  - Arthralgia [Unknown]
  - Erythema [Unknown]
  - Pain [Unknown]
  - Malaise [Unknown]
  - Ulcer [Unknown]
  - Gait disturbance [Unknown]
  - Oral candidiasis [Unknown]
  - Nasal congestion [Unknown]
  - Weight decreased [Unknown]
  - Chills [Unknown]
  - Flatulence [Unknown]
  - Peripheral swelling [Unknown]
  - Stomatitis [Unknown]
  - Nausea [Unknown]
  - Oedema peripheral [Unknown]
  - Asthenia [Unknown]
  - Decreased appetite [Unknown]
  - Glossodynia [Unknown]
  - Disease progression [Unknown]
  - Limb discomfort [Unknown]
  - Off label use [Unknown]

NARRATIVE: CASE EVENT DATE: 20050404
